FAERS Safety Report 6510943-0 (Version None)
Quarter: 2009Q4

REPORT INFORMATION
  Report Type: 
  Country: None (occurrence: None)
  Receive Date: 20091222
  Receipt Date: 20090205
  Transmission Date: 20100525
  Serious: No
  Sender: FDA-Public Use
  Company Number: US-ASTRAZENECA-2009UW03452

PATIENT
  Age: 74 Year
  Sex: Male
  Weight: 86.2 kg

DRUGS (12)
  1. CRESTOR [Suspect]
     Route: 048
     Dates: start: 20081101
  2. LEXAPRO [Concomitant]
  3. PLAVIX [Concomitant]
  4. ISOSORBIDE [Concomitant]
  5. METOPROLOL TARTRATE [Concomitant]
  6. CLONIDINE [Concomitant]
  7. BENICAR [Concomitant]
  8. FUROSEMIDE [Concomitant]
  9. LISINOPRIL [Concomitant]
  10. ARICEPT [Concomitant]
  11. POTASSIUM [Concomitant]
  12. VITAMIN B-12 [Concomitant]

REACTIONS (2)
  - DIARRHOEA [None]
  - SOMNOLENCE [None]
